FAERS Safety Report 9304190 (Version 2)
Quarter: 2013Q2

REPORT INFORMATION
  Report Type: Spontaneous
  Country: FR (occurrence: FR)
  Receive Date: 20130522
  Receipt Date: 20130626
  Transmission Date: 20140414
  Serious: Yes (Death, Hospitalization)
  Sender: FDA-Public Use
  Company Number: FR-ACTELION-A-CH2013-83239

PATIENT
  Age: 24 Year
  Sex: Male
  Weight: 55 kg

DRUGS (1)
  1. ZAVESCA [Suspect]
     Indication: NIEMANN-PICK DISEASE
     Dosage: 200 MG, TID
     Route: 048
     Dates: start: 200603, end: 20130507

REACTIONS (4)
  - Myocardial infarction [Fatal]
  - Niemann-Pick disease [Fatal]
  - Disease progression [Fatal]
  - Pneumonia aspiration [Fatal]
